FAERS Safety Report 23096200 (Version 6)
Quarter: 2023Q4

REPORT INFORMATION
  Report Type: Report from Study
  Country: CA (occurrence: CA)
  Receive Date: 20231023
  Receipt Date: 20231226
  Transmission Date: 20240110
  Serious: Yes (Hospitalization, Other)
  Sender: FDA-Public Use
  Company Number: CA-002147023-NVSC2023CA090965

PATIENT
  Age: 51 Year
  Sex: Male
  Weight: 79 kg

DRUGS (11)
  1. MAYZENT [Suspect]
     Active Substance: SIPONIMOD
     Indication: Secondary progressive multiple sclerosis
     Dosage: 0.25 MG, QID
     Route: 048
     Dates: start: 20230304
  2. MAYZENT [Suspect]
     Active Substance: SIPONIMOD
     Dosage: 1.25 MG, QD
     Route: 048
     Dates: start: 20230323
  3. MAYZENT [Suspect]
     Active Substance: SIPONIMOD
     Dosage: 2 MG, QD
     Route: 048
     Dates: start: 20230324
  4. MAYZENT [Suspect]
     Active Substance: SIPONIMOD
     Dosage: 1 MG, QD
     Route: 048
  5. MAYZENT [Suspect]
     Active Substance: SIPONIMOD
     Dosage: 1 MG
     Route: 065
     Dates: start: 202304
  6. MAYZENT [Suspect]
     Active Substance: SIPONIMOD
     Dosage: UNK (0.27)
     Route: 065
  7. MAYZENT [Suspect]
     Active Substance: SIPONIMOD
     Dosage: 1 MG, DAILY FOR 4 WEEKS
     Route: 048
  8. MAYZENT [Suspect]
     Active Substance: SIPONIMOD
     Dosage: 1.25 MG, DAILY
     Route: 048
  9. MAYZENT [Suspect]
     Active Substance: SIPONIMOD
     Dosage: 1 MG, QD
     Route: 048
  10. TECFIDERA [Concomitant]
     Active Substance: DIMETHYL FUMARATE
     Indication: Secondary progressive multiple sclerosis
     Dosage: UNK
     Route: 065
     Dates: start: 2019, end: 2022
  11. DALFAMPRIDINE [Concomitant]
     Active Substance: DALFAMPRIDINE
     Indication: Product used for unknown indication
     Dosage: UNK
     Route: 065

REACTIONS (15)
  - COVID-19 pneumonia [Recovering/Resolving]
  - Urinary tract infection [Recovering/Resolving]
  - Dehydration [Recovering/Resolving]
  - Chronic kidney disease [Unknown]
  - Hydronephrosis [Unknown]
  - Renal haematoma [Unknown]
  - Neurogenic bladder [Unknown]
  - Multiple sclerosis pseudo relapse [Unknown]
  - Pelvi-ureteric obstruction [Unknown]
  - Multiple sclerosis [Recovering/Resolving]
  - Muscular weakness [Unknown]
  - Fall [Unknown]
  - Lymphopenia [Recovering/Resolving]
  - Wrong technique in product usage process [Unknown]
  - Wrong strength [Unknown]

NARRATIVE: CASE EVENT DATE: 20230419
